FAERS Safety Report 5453074-3 (Version None)
Quarter: 2007Q3

REPORT INFORMATION
  Report Type: 
  Country: None (occurrence: None)
  Receive Date: 20070914
  Receipt Date: 20070906
  Transmission Date: 20080115
  Serious: Yes (Life-Threatening, Hospitalization)
  Sender: FDA-Public Use
  Company Number: GB-PFIZER INC-2007066644

PATIENT
  Sex: Female
  Weight: 33.5 kg

DRUGS (4)
  1. GENOTROPIN [Suspect]
     Indication: GROWTH HORMONE DEFICIENCY
     Dosage: FREQ:DAILY: EVERY DAY
     Route: 058
  2. LEVOTHYROXINE SODIUM [Concomitant]
     Indication: HYPOTHYROIDISM
     Dosage: DAILY DOSE:75MCG
     Route: 048
  3. ETHINYLOESTRADIOL [Concomitant]
     Dosage: DAILY DOSE:8MCG
     Route: 048
  4. SEPTRIN [Concomitant]
     Dosage: TEXT:480MG TWICE WEEKLY
     Route: 048

REACTIONS (2)
  - GLIOBLASTOMA [None]
  - GRAND MAL CONVULSION [None]
